FAERS Safety Report 7341575-2 (Version None)
Quarter: 2011Q1

REPORT INFORMATION
  Report Type: 
  Country: None (occurrence: None)
  Receive Date: 20110309
  Receipt Date: 20110209
  Transmission Date: 20110831
  Serious: No
  Sender: FDA-Public Use
  Company Number: US-B.I. PHARMACEUTICALS,INC./RIDGEFIELD-2010-BP-12677BP

PATIENT
  Sex: Female

DRUGS (8)
  1. SUCRALFATE [Suspect]
     Indication: GASTRITIS
     Dates: start: 20100101
  2. ZANTAC 75 [Suspect]
     Indication: FLATULENCE
  3. DILTIAZEM [Concomitant]
     Indication: HYPERTENSION
     Dosage: 120 MG
  4. FUROSEMIDE [Concomitant]
     Indication: JOINT SWELLING
     Dosage: 20 MG
  5. MULTI-VITAMINS [Concomitant]
     Indication: PROPHYLAXIS
  6. CALCIUM [Concomitant]
     Indication: PROPHYLAXIS
     Dosage: 1000 MG
  7. ZANTAC 75 [Suspect]
     Indication: ABDOMINAL PAIN
     Dosage: 75 MG
     Route: 048
     Dates: start: 20090101, end: 20101209
  8. ASPIRIN [Concomitant]
     Dosage: 81 MG

REACTIONS (3)
  - WEIGHT DECREASED [None]
  - GASTRITIS [None]
  - DIARRHOEA [None]
